FAERS Safety Report 7714901-X (Version None)
Quarter: 2011Q3

REPORT INFORMATION
  Report Type: 
  Country: None (occurrence: None)
  Receive Date: 20110822
  Receipt Date: 20110804
  Transmission Date: 20111222
  Serious: Yes (Death, Other)
  Sender: FDA-Public Use
  Company Number: 2011MA011467

PATIENT
  Age: 34 Year

DRUGS (4)
  1. METHADONE HCL [Suspect]
     Indication: OVERDOSE
     Dosage: 1.9 MG/L
  2. NORDIAZEPAM (NO PREF. NAME) [Suspect]
     Indication: OVERDOSE
  3. METHAMPHETAMINE HYDROCHLORIDE [Suspect]
     Indication: OVERDOSE
  4. ALPRAZOLAM [Suspect]
     Indication: OVERDOSE

REACTIONS (7)
  - PULMONARY OEDEMA [None]
  - OVERDOSE [None]
  - ASPIRATION [None]
  - PULMONARY CONGESTION [None]
  - TOXICITY TO VARIOUS AGENTS [None]
  - RESPIRATORY DEPRESSION [None]
  - NEEDLE TRACK MARKS [None]
